FAERS Safety Report 6409670-X (Version None)
Quarter: 2009Q4

REPORT INFORMATION
  Report Type: 
  Country: None (occurrence: None)
  Receive Date: 20091021
  Receipt Date: 20091021
  Transmission Date: 20100525
  Serious: Yes (Death)
  Sender: FDA-Public Use
  Company Number: None

PATIENT
  Age: 40 Year
  Sex: Female
  Weight: 221 kg

DRUGS (1)
  1. EFFEXOR XR [Suspect]
     Dosage: 75MG BID PO
     Route: 048

REACTIONS (1)
  - ACUTE HEPATIC FAILURE [None]
